FAERS Safety Report 8116818-8 (Version None)
Quarter: 2011Q4

REPORT INFORMATION
  Report Type: 
  Country: None (occurrence: None)
  Receive Date: 20111227
  Receipt Date: 20110610
  Transmission Date: 20120403
  Serious: Yes (Hospitalization, Other)
  Sender: FDA-Public Use
  Company Number: PHHY2011US29995

PATIENT
  Age: 87 Year
  Sex: Female

DRUGS (3)
  1. POTASSIUM CHLORIDE [Concomitant]
  2. LASIX [Concomitant]
  3. FEMARA [Suspect]
     Indication: BREAST CANCER
     Dosage: 2.5 MG, DAILY, ORAL
     Route: 048
     Dates: start: 20100816

REACTIONS (3)
  - PAIN [None]
  - THROMBOSIS [None]
  - SWELLING [None]
